FAERS Safety Report 5711948-X (Version None)
Quarter: 2008Q2

REPORT INFORMATION
  Report Type: 
  Country: None (occurrence: None)
  Receive Date: 20080421
  Receipt Date: 20080414
  Transmission Date: 20081010
  Serious: No
  Sender: FDA-Public Use
  Company Number: US-BAXTER-2008BH003583

PATIENT
  Sex: Female

DRUGS (3)
  1. HEPARIN SODIUM 5,000 UNITS IN DEXTROSE 5% [Suspect]
     Indication: ATRIAL FIBRILLATION
     Route: 041
     Dates: start: 20080401, end: 20080401
  2. HEPARIN SODIUM 5,000 UNITS IN DEXTROSE 5% [Suspect]
     Route: 041
     Dates: start: 20080401, end: 20080401
  3. GLEEVEC [Concomitant]
     Indication: DRUG USE FOR UNKNOWN INDICATION
     Route: 065

REACTIONS (6)
  - ARTHRALGIA [None]
  - FLANK PAIN [None]
  - HAEMATOCRIT DECREASED [None]
  - NAUSEA [None]
  - RETROPERITONEAL HAEMORRHAGE [None]
  - VOMITING [None]
